FAERS Safety Report 25657595 (Version 3)
Quarter: 2025Q3

REPORT INFORMATION
  Report Type: Spontaneous
  Country: CH (occurrence: CH)
  Receive Date: 20250808
  Receipt Date: 20250911
  Transmission Date: 20251021
  Serious: Yes (Death, Life-Threatening, Other)
  Sender: ALEXION PHARMACEUTICALS
  Company Number: CH-ASTRAZENECA-202508EEA002044CH

PATIENT
  Sex: Female

DRUGS (2)
  1. IMFINZI [Suspect]
     Active Substance: DURVALUMAB
     Route: 065
  2. IRESSA [Suspect]
     Active Substance: GEFITINIB
     Route: 065

REACTIONS (6)
  - Death [Fatal]
  - Haematotoxicity [Unknown]
  - Device related infection [Unknown]
  - Malignant neoplasm progression [Unknown]
  - General physical health deterioration [Unknown]
  - Off label use [Unknown]
